FAERS Safety Report 6602120-X (Version None)
Quarter: 2010Q1

REPORT INFORMATION
  Report Type: 
  Country: None (occurrence: None)
  Receive Date: 20100225
  Receipt Date: 20100218
  Transmission Date: 20100710
  Serious: Yes (Hospitalization)
  Sender: FDA-Public Use
  Company Number: PHHO2010DE01962

PATIENT
  Age: 61 Year
  Sex: Male

DRUGS (3)
  1. ZOLEDRONIC ACID [Suspect]
     Indication: PROSTATE CANCER
     Dosage: 4 MG, MONTHLY
     Route: 042
     Dates: start: 20100115
  2. DOCETAXEL [Suspect]
     Indication: PROSTATE CANCER
     Dosage: 115 MG, EVERY 3 WEEKS
     Route: 042
     Dates: start: 20090721
  3. PREDNISOLONE [Concomitant]
     Indication: PROSTATE CANCER

REACTIONS (1)
  - FEBRILE NEUTROPENIA [None]
